FAERS Safety Report 17572831 (Version 1)
Quarter: 2020Q1

REPORT INFORMATION
  Report Type: Spontaneous
  Country: US (occurrence: US)
  Receive Date: 20200323
  Receipt Date: 20200323
  Transmission Date: 20200409
  Serious: Yes (Other)
  Sender: FDA-Public Use
  Company Number: None

PATIENT
  Age: 15 Year
  Sex: Male
  Weight: 81.45 kg

DRUGS (4)
  1. ONDANSETRON 8MG [Concomitant]
     Active Substance: ONDANSETRON
  2. VOTRIENT [Suspect]
     Active Substance: PAZOPANIB HYDROCHLORIDE
     Route: 048
     Dates: start: 20191116, end: 20200323
  3. LOPERAMIDE 2MG [Concomitant]
     Active Substance: LOPERAMIDE
  4. LIDOCAINE 4% [Concomitant]
     Active Substance: LIDOCAINE

REACTIONS (1)
  - Disease progression [None]

NARRATIVE: CASE EVENT DATE: 20200323
